FAERS Safety Report 9277104 (Version 1)
Quarter: 2013Q2

REPORT INFORMATION
  Report Type: Spontaneous
  Country: BR (occurrence: BR)
  Receive Date: 20130507
  Receipt Date: 20130507
  Transmission Date: 20140414
  Serious: Yes (Other)
  Sender: FDA-Public Use
  Company Number: BR-ELI_LILLY_AND_COMPANY-BR201304008083

PATIENT
  Sex: Female
  Weight: 59 kg

DRUGS (6)
  1. HUMULIN NPH [Suspect]
     Indication: DIABETES MELLITUS
     Dosage: 30 IU, QD
     Route: 058
     Dates: start: 1982
  2. HUMULIN REGULAR [Suspect]
     Indication: DIABETES MELLITUS
     Dosage: UNK, UNKNOWN
     Route: 058
     Dates: start: 1982
  3. INSULIN HUMAN [Concomitant]
     Dosage: UNK, UNKNOWN
     Route: 065
  4. INSULIN, REGULAR [Concomitant]
     Dosage: UNK, UNKNOWN
     Route: 065
  5. FUROSEMIDA                         /00032601/ [Concomitant]
     Dosage: UNK, UNKNOWN
     Route: 065
  6. CAPTOPRIL [Concomitant]
     Indication: RENAL FAILURE
     Dosage: UNK, QD
     Route: 065

REACTIONS (7)
  - Blindness [Not Recovered/Not Resolved]
  - Retinal detachment [Unknown]
  - Optic nerve injury [Unknown]
  - Renal failure [Unknown]
  - Stress [Unknown]
  - Exposure during pregnancy [Recovered/Resolved]
  - Hypoglycaemia [Unknown]
